FAERS Safety Report 5848433-0 (Version None)
Quarter: 2008Q3

REPORT INFORMATION
  Report Type: 
  Country: None (occurrence: None)
  Receive Date: 20080815
  Receipt Date: 20080815
  Transmission Date: 20090109
  Serious: No
  Sender: FDA-Public Use
  Company Number: None

PATIENT
  Age: 25 Year
  Sex: Female
  Weight: 56.246 kg

DRUGS (1)
  1. PROVIGIL [Suspect]
     Dosage: 1 PILL  1 TIME DAILY PO
     Route: 048
     Dates: start: 20080812, end: 20080814

REACTIONS (1)
  - RASH GENERALISED [None]
